FAERS Safety Report 15012723 (Version 1)
Quarter: 2018Q2

REPORT INFORMATION
  Report Type: Report from Study
  Country: US (occurrence: US)
  Receive Date: 20180614
  Receipt Date: 20180614
  Transmission Date: 20180711
  Serious: Yes (Other)
  Sender: FDA-Public Use
  Company Number: US-SHIRE-US201821350

PATIENT
  Sex: Female
  Weight: 97 kg

DRUGS (1)
  1. CUVITRU [Suspect]
     Active Substance: HUMAN IMMUNOGLOBULIN G
     Indication: PRODUCT USED FOR UNKNOWN INDICATION
     Dosage: 13 G, 1X/WEEK (EVERY 7 DAYS)
     Route: 058
     Dates: start: 20180522

REACTIONS (1)
  - Herpes zoster [Unknown]
